FAERS Safety Report 4835386-7 (Version None)
Quarter: 2005Q4

REPORT INFORMATION
  Report Type: 
  Country: None (occurrence: None)
  Receive Date: 20051118
  Receipt Date: 20051104
  Transmission Date: 20060501
  Serious: Yes (Other)
  Sender: FDA-Public Use
  Company Number: 2005BI016526

PATIENT
  Age: 63 Year
  Sex: Female

DRUGS (16)
  1. AVONEX [Suspect]
     Indication: MULTIPLE SCLEROSIS
     Dosage: 30 UG;QW; IM
     Route: 030
     Dates: start: 19990101
  2. AVONEX [Suspect]
     Indication: MULTIPLE SCLEROSIS
     Dosage: 30 UG;QW; IM
     Route: 030
  3. NOVANTRONE [Concomitant]
  4. CLADRIBINE [Concomitant]
  5. METOPROLOL [Concomitant]
  6. SYNTHROID [Concomitant]
  7. LEXAPRO [Concomitant]
  8. AMITRIPTYLINE HCL [Concomitant]
  9. BACLOFEN [Concomitant]
  10. LIPITOR [Concomitant]
  11. PLAVIX [Concomitant]
  12. FOLTX [Concomitant]
  13. EQUATE [Concomitant]
  14. VITAMINS [Concomitant]
  15. ASPIRIN [Concomitant]
  16. PROCRIT [Concomitant]

REACTIONS (7)
  - BONE MARROW FAILURE [None]
  - CORONARY ARTERY DISEASE [None]
  - EOSINOPHIL PERCENTAGE INCREASED [None]
  - IRON DEFICIENCY [None]
  - MYELODYSPLASTIC SYNDROME [None]
  - MYOCARDIAL INFARCTION [None]
  - PANCYTOPENIA [None]
